FAERS Safety Report 10015105 (Version 3)
Quarter: 2014Q2

REPORT INFORMATION
  Report Type: Spontaneous
  Country: JP (occurrence: JP)
  Receive Date: 20140317
  Receipt Date: 20140430
  Transmission Date: 20141212
  Serious: Yes (Death)
  Sender: FDA-Public Use
  Company Number: JP-PFIZER INC-2014072701

PATIENT
  Age: 43 Year
  Sex: Female
  Weight: 74 kg

DRUGS (2)
  1. AMLODIPINE BESILATE [Suspect]
     Dosage: 1000 MG, UNK
     Route: 048
  2. DOXAZOSIN MESILATE [Suspect]
     Dosage: 30 MG, UNK
     Route: 048

REACTIONS (5)
  - Completed suicide [Fatal]
  - Intentional overdose [Fatal]
  - Hypotension [Fatal]
  - Multi-organ failure [Fatal]
  - Gastrointestinal necrosis [Fatal]
